FAERS Safety Report 7157107-8 (Version None)
Quarter: 2010Q4

REPORT INFORMATION
  Report Type: 
  Country: None (occurrence: None)
  Receive Date: 20101214
  Receipt Date: 20100108
  Transmission Date: 20110411
  Serious: No
  Sender: FDA-Public Use
  Company Number: US-ASTRAZENECA-2010SE01021

PATIENT
  Sex: Female

DRUGS (5)
  1. CRESTOR [Suspect]
     Route: 048
     Dates: start: 20100108
  2. METOPROLOL SUCCINATE (WATSON) [Concomitant]
  3. DIOVAN [Concomitant]
  4. FLOVENT [Concomitant]
  5. WELLBUTRIN [Concomitant]

REACTIONS (1)
  - EYE MOVEMENT DISORDER [None]
